FAERS Safety Report 16724531 (Version 4)
Quarter: 2019Q3

REPORT INFORMATION
  Report Type: Spontaneous
  Country: US (occurrence: US)
  Receive Date: 20190821
  Receipt Date: 20190927
  Transmission Date: 20191005
  Serious: Yes (Hospitalization, Other)
  Sender: FDA-Public Use
  Company Number: US-UNITED THERAPEUTICS-UNT-2019-013477

PATIENT
  Age: 52 Year
  Sex: Female
  Weight: 60.91 kg

DRUGS (44)
  1. XANAX [Concomitant]
     Active Substance: ALPRAZOLAM
     Indication: ANXIETY
     Dosage: 1 DF, TID (AS NEEDED)
     Route: 048
  2. CYANOCOBALAMIN. [Concomitant]
     Active Substance: CYANOCOBALAMIN
     Indication: PRODUCT USED FOR UNKNOWN INDICATION
     Dosage: 1000 ?G, QMO
     Route: 030
  3. DOCUSATE;SENNA [Concomitant]
     Indication: PRODUCT USED FOR UNKNOWN INDICATION
     Dosage: 1 DF, BID
     Route: 048
  4. FERROUS SULFATE. [Concomitant]
     Active Substance: FERROUS SULFATE
     Indication: PRODUCT USED FOR UNKNOWN INDICATION
     Dosage: 1 DF, DAILY (65 MG ELEMENTAL IRON)
     Route: 048
  5. ZOFRAN [Concomitant]
     Active Substance: ONDANSETRON HYDROCHLORIDE
     Indication: VOMITING
  6. PROMETHAZINE [Concomitant]
     Active Substance: PROMETHAZINE HYDROCHLORIDE
     Indication: VOMITING
  7. ENOXAPARIN [Concomitant]
     Active Substance: ENOXAPARIN
     Indication: PRODUCT USED FOR UNKNOWN INDICATION
     Dosage: 60 MG, Q12H
     Route: 058
  8. ALBUTEROL. [Concomitant]
     Active Substance: ALBUTEROL
     Indication: WHEEZING
     Dosage: 3 ML, Q6H (AS NEEDED)
  9. PROAIR HFA [Concomitant]
     Active Substance: ALBUTEROL SULFATE
     Indication: WHEEZING
     Dosage: 2 PUFF, QID (AS NEEDED)
  10. FLONASE [Concomitant]
     Active Substance: FLUTICASONE PROPIONATE
     Indication: PRODUCT USED FOR UNKNOWN INDICATION
     Dosage: 1 SPRAY (50 ?G/INHALATION), BID
     Route: 065
  11. LASIX [Concomitant]
     Active Substance: FUROSEMIDE
     Indication: PRODUCT USED FOR UNKNOWN INDICATION
     Dosage: 40 MG, BID
     Route: 048
  12. POTASSIUM CHLORIDE. [Concomitant]
     Active Substance: POTASSIUM CHLORIDE
     Indication: PRODUCT USED FOR UNKNOWN INDICATION
     Dosage: 2 DF, DAILY WITH BREAKFAST
     Route: 048
  13. LYRICA [Concomitant]
     Active Substance: PREGABALIN
     Indication: PRODUCT USED FOR UNKNOWN INDICATION
     Dosage: 1 DF, BID
     Route: 048
  14. LETAIRIS [Concomitant]
     Active Substance: AMBRISENTAN
     Indication: PRODUCT USED FOR UNKNOWN INDICATION
     Dosage: 1 DF, DAILY
     Route: 048
  15. FOLIC ACID. [Concomitant]
     Active Substance: FOLIC ACID
     Indication: PRODUCT USED FOR UNKNOWN INDICATION
     Dosage: 1 DF, DAILY
     Route: 048
  16. VIMPAT [Concomitant]
     Active Substance: LACOSAMIDE
     Indication: PRODUCT USED FOR UNKNOWN INDICATION
     Dosage: 1 DF, Q12H
     Route: 048
  17. LEVETIRACETAM. [Concomitant]
     Active Substance: LEVETIRACETAM
     Indication: PRODUCT USED FOR UNKNOWN INDICATION
     Dosage: 1 DF, BID
     Route: 048
  18. LIDOCAINE. [Concomitant]
     Active Substance: LIDOCAINE
     Indication: PRODUCT USED FOR UNKNOWN INDICATION
     Dosage: 1 PATCH, QD
     Route: 061
  19. SALINE NASAL MIST [Concomitant]
     Indication: NASAL DRYNESS
     Dosage: 2 SPRAYS, QID (AS NEEDED)
     Route: 045
  20. OXYCODONE [Suspect]
     Active Substance: OXYCODONE
     Dosage: 10 MG, Q12H (AS NEEDED)
     Route: 065
  21. OXYCONTIN [Suspect]
     Active Substance: OXYCODONE HYDROCHLORIDE
     Indication: PRODUCT USED FOR UNKNOWN INDICATION
     Dosage: UNK
     Route: 065
  22. ATORVASTATIN [Concomitant]
     Active Substance: ATORVASTATIN
     Indication: PRODUCT USED FOR UNKNOWN INDICATION
     Dosage: 1 DF, UNK (BEDTIME)
     Route: 048
  23. MELATONIN [Concomitant]
     Active Substance: MELATONIN
     Indication: PRODUCT USED FOR UNKNOWN INDICATION
     Dosage: 1 DF, UNK (BEDTIME)
     Route: 048
  24. SPIRIVA RESPIMAT [Concomitant]
     Active Substance: TIOTROPIUM BROMIDE
     Indication: PRODUCT USED FOR UNKNOWN INDICATION
     Dosage: 2 PUFF (1.25 ?G/INHALATION AEROSOL), DAILY
  25. ASPIRIN 81 [Concomitant]
     Active Substance: ASPIRIN
     Indication: PRODUCT USED FOR UNKNOWN INDICATION
     Dosage: 1 DF, DAILY (WITH BREAKFAST)
     Route: 048
  26. CEVIMELINE. [Concomitant]
     Active Substance: CEVIMELINE
     Indication: PRODUCT USED FOR UNKNOWN INDICATION
     Dosage: 1 DF, TID
     Route: 048
  27. WARFARIN [Concomitant]
     Active Substance: WARFARIN
     Indication: PRODUCT USED FOR UNKNOWN INDICATION
     Dosage: 2 DF, ON MONDAY, WEDNESDAY AND FRIDAY
     Route: 048
  28. WARFARIN [Concomitant]
     Active Substance: WARFARIN
     Dosage: 1 DF, ALL OTHER DAYS OF WEEK
     Route: 048
  29. PROMETHAZINE [Concomitant]
     Active Substance: PROMETHAZINE HYDROCHLORIDE
     Indication: VOMITING
  30. ADCIRCA [Concomitant]
     Active Substance: TADALAFIL
     Indication: PRODUCT USED FOR UNKNOWN INDICATION
     Dosage: 40 MG, QD
     Route: 048
  31. REMODULIN [Suspect]
     Active Substance: TREPROSTINIL
     Dosage: 0.014 ?G/KG, CONTINUING
     Route: 058
     Dates: start: 201908
  32. TYLENOL [Concomitant]
     Active Substance: ACETAMINOPHEN
     Indication: PAIN
     Dosage: 650 MG, QID (AS NEEDED)
     Route: 048
  33. IPRATROPIUM [Concomitant]
     Active Substance: IPRATROPIUM
     Indication: RESPIRATORY TRACT CONGESTION
     Dosage: 2 SPRAY, EACH NOSTRIL, BID (AS NEEDED)
     Route: 045
  34. PROMETHAZINE [Concomitant]
     Active Substance: PROMETHAZINE HYDROCHLORIDE
     Indication: NAUSEA
     Dosage: 1 DF, Q8H (AS NEEDED)
     Route: 048
  35. TRAZODONE [Concomitant]
     Active Substance: TRAZODONE HYDROCHLORIDE
     Indication: INSOMNIA
     Dosage: 1 DF, PRN (BEDTIME)
     Route: 048
  36. PLO GEL [Concomitant]
     Active Substance: LECITHIN\POLOXAMER 407
     Indication: PRODUCT USED FOR UNKNOWN INDICATION
     Dosage: UNK
     Route: 065
  37. REMODULIN [Suspect]
     Active Substance: TREPROSTINIL
     Indication: PULMONARY ARTERIAL HYPERTENSION
     Dosage: 0.0125 ?G/KG, CONTINUING
     Route: 058
     Dates: start: 20190807
  38. OXYCODONE [Suspect]
     Active Substance: OXYCODONE
     Indication: PAIN
     Dosage: 15 MG, Q3H (IMMEDIATE RELEASE)
     Route: 048
  39. DILAUDID [Suspect]
     Active Substance: HYDROMORPHONE HYDROCHLORIDE
     Indication: PRODUCT USED FOR UNKNOWN INDICATION
     Dosage: UNK
     Route: 065
  40. ZOFRAN [Concomitant]
     Active Substance: ONDANSETRON HYDROCHLORIDE
     Indication: NAUSEA
     Dosage: 1 DF, Q12H (AS NEEDED)
     Route: 048
  41. PHENYLEPHRINE;PROMETHAZINE [Concomitant]
     Indication: RESPIRATORY TRACT CONGESTION
     Dosage: 5 ML, Q6H (5 MG-6.25 MG/5 ML, AS NEEDED)
     Route: 048
  42. PROMETHAZINE [Concomitant]
     Active Substance: PROMETHAZINE HYDROCHLORIDE
     Indication: NAUSEA
     Dosage: 25 MG, Q6H (AS NEEDED)
     Route: 030
  43. MAXALT-MLT [Concomitant]
     Active Substance: RIZATRIPTAN BENZOATE
     Indication: MIGRAINE
     Dosage: 1 DF, ONE TIME (AS NEEDED)
     Route: 048
  44. IRON [Concomitant]
     Active Substance: IRON
     Indication: PRODUCT USED FOR UNKNOWN INDICATION
     Route: 065

REACTIONS (5)
  - Mental status changes [Recovered/Resolved]
  - Fluid overload [Recovered/Resolved]
  - Hypoxia [Recovered/Resolved]
  - Right ventricular failure [Recovering/Resolving]
  - Overdose [Recovered/Resolved]

NARRATIVE: CASE EVENT DATE: 20190810
